FAERS Safety Report 13534927 (Version 18)
Quarter: 2019Q3

REPORT INFORMATION
  Report Type: Report from Study
  Country: None (occurrence: JP)
  Receive Date: 20170511
  Receipt Date: 20190924
  Transmission Date: 20191004
  Serious: Yes (Hospitalization)
  Sender: FDA-Public Use
  Company Number: JP-ABBVIE-17K-087-1968634-00

PATIENT
  Age: 48 Year
  Sex: Female
  Weight: 44 kg

DRUGS (16)
  1. DUODOPA [Suspect]
     Active Substance: CARBIDOPA\LEVODOPA
     Indication: PARKINSON^S DISEASE
     Dosage: MD: 11 ML, CD: 3.1 ML/HR X 16 HR, ED: 1 ML/UNIT X 1
     Route: 050
     Dates: start: 20170420, end: 20170420
  2. DUODOPA [Suspect]
     Active Substance: CARBIDOPA\LEVODOPA
     Dosage: MD: 9 ML, CD: 3.3 ML/HR X 16 HR, ED: 1 ML/UNIT X 3
     Route: 050
     Dates: start: 20170429, end: 20170516
  3. DUODOPA [Suspect]
     Active Substance: CARBIDOPA\LEVODOPA
     Dosage: MD: 9 ML?CD: 2.5 ML/HR ? 16 HRS?ED: 1 ML/UNIT ? 4
     Route: 050
     Dates: start: 20171205, end: 20180115
  4. DUODOPA [Suspect]
     Active Substance: CARBIDOPA\LEVODOPA
     Dosage: MD: 6 ML, CD: 3.3 ML/HR X 16 HR, ED: 1 ML/UNIT X 3
     Route: 050
     Dates: start: 20170421, end: 20170426
  5. DUODOPA [Suspect]
     Active Substance: CARBIDOPA\LEVODOPA
     Dosage: MD: 9 ML?CD: 2.8 ML/HR ? 16 HRS?ED: 1 ML/UNIT ? 4
     Route: 050
     Dates: start: 20180116
  6. ROTIGOTINE [Concomitant]
     Active Substance: ROTIGOTINE
     Indication: PARKINSON^S DISEASE
     Route: 062
  7. DUODOPA [Suspect]
     Active Substance: CARBIDOPA\LEVODOPA
     Dosage: MD: 9.0 ML, CD: 3.6 ML/HR X 16 HR, ED: 1 ML/UNIT X 3
     Route: 050
     Dates: start: 20170529, end: 20171006
  8. ZONISAMIDE. [Concomitant]
     Active Substance: ZONISAMIDE
     Indication: PARKINSON^S DISEASE
     Route: 048
  9. ZONISAMIDE. [Concomitant]
     Active Substance: ZONISAMIDE
     Route: 048
  10. DUODOPA [Suspect]
     Active Substance: CARBIDOPA\LEVODOPA
     Dosage: MD: 9 ML, CD: 3.3 ML/HR X 16 HR, ED: 1 ML/UNIT X 3
     Route: 050
     Dates: start: 20170428, end: 20170429
  11. DUODOPA [Suspect]
     Active Substance: CARBIDOPA\LEVODOPA
     Dosage: MD: 9 ML, CD: 3.3 ML/HR X 16 HR, ED: 1 ML/UNIT X 3
     Route: 050
     Dates: start: 20170519, end: 20170528
  12. DUODOPA [Suspect]
     Active Substance: CARBIDOPA\LEVODOPA
     Dosage: MD: 9 ML,CD: 3.3 ML/HR ? 16 HRS?ED: 1 ML/UNIT ? 3
     Route: 050
     Dates: start: 20171007, end: 20171029
  13. DUODOPA [Suspect]
     Active Substance: CARBIDOPA\LEVODOPA
     Dosage: MD: 9 ML?CD: 3.0 ML/HR ? 16 HRS?ED: 1 ML/UNIT ? 4
     Route: 050
     Dates: start: 20171030, end: 201712
  14. LANSOPRAZOLE. [Concomitant]
     Active Substance: LANSOPRAZOLE
     Indication: PRODUCT USED FOR UNKNOWN INDICATION
     Route: 048
  15. DUODOPA [Suspect]
     Active Substance: CARBIDOPA\LEVODOPA
     Dosage: MD: 9 ML, CD: 3.6 ML/HR X 16 HR, ED: 1 ML/UNIT X 3
     Route: 050
     Dates: start: 20170517, end: 20170518
  16. BROTIZOLAM [Concomitant]
     Active Substance: BROTIZOLAM
     Indication: PRODUCT USED FOR UNKNOWN INDICATION
     Route: 048

REACTIONS (17)
  - Nausea [Not Recovered/Not Resolved]
  - Dyskinesia [Recovered/Resolved]
  - Musculoskeletal stiffness [Not Recovered/Not Resolved]
  - Hallucination, auditory [Not Recovered/Not Resolved]
  - Device electrical finding [Unknown]
  - Chest discomfort [Unknown]
  - Stress [Unknown]
  - Medical device site irritation [Unknown]
  - Fistula discharge [Recovered/Resolved]
  - Device issue [Unknown]
  - Stoma site pain [Unknown]
  - Peritonitis [Recovered/Resolved]
  - Musculoskeletal stiffness [Not Recovered/Not Resolved]
  - Device occlusion [Unknown]
  - Therapeutic product effect incomplete [Unknown]
  - Gastric fistula [Recovered/Resolved]
  - Cholecystitis [Recovered/Resolved with Sequelae]

NARRATIVE: CASE EVENT DATE: 2017
